FAERS Safety Report 10134157 (Version 1)
Quarter: 2014Q2

REPORT INFORMATION
  Report Type: Spontaneous
  Country: US (occurrence: US)
  Receive Date: 20140428
  Receipt Date: 20140428
  Transmission Date: 20141212
  Serious: No
  Sender: FDA-Public Use
  Company Number: US-SANOFI-AVENTIS-2013SA075306

PATIENT
  Age: 14 Year
  Sex: Female
  Weight: 45.35 kg

DRUGS (3)
  1. ALLEGRA [Suspect]
     Indication: URTICARIA
     Route: 048
     Dates: start: 20130718
  2. ALLEGRA [Suspect]
     Indication: URTICARIA
     Route: 048
     Dates: start: 20130830, end: 20130920
  3. DIPHENHYDRAMINE HYDROCHLORIDE [Concomitant]
     Route: 065

REACTIONS (3)
  - Headache [Not Recovered/Not Resolved]
  - Extra dose administered [Unknown]
  - Drug administration error [Unknown]
